FAERS Safety Report 6172834-7 (Version None)
Quarter: 2009Q2

REPORT INFORMATION
  Report Type: 
  Country: None (occurrence: None)
  Receive Date: 20090430
  Receipt Date: 20090424
  Transmission Date: 20091009
  Serious: Yes (Other)
  Sender: FDA-Public Use
  Company Number: GB-BAYER-200911042BNE

PATIENT
  Age: 62 Year
  Sex: Female

DRUGS (11)
  1. SORAFENIB [Suspect]
     Indication: NON-SMALL CELL LUNG CANCER
     Dosage: CYCLE 1
     Route: 048
     Dates: start: 20081217, end: 20090326
  2. GEMCITABINE HCL [Suspect]
     Indication: NON-SMALL CELL LUNG CANCER
     Dosage: 2000MG DAY1 AND DAY 8
     Route: 042
     Dates: start: 20081217, end: 20090326
  3. CISPLATIN [Suspect]
     Indication: NON-SMALL CELL LUNG CANCER
     Route: 042
     Dates: start: 20081217, end: 20090326
  4. LIPITOR [Concomitant]
     Indication: BLOOD CHOLESTEROL INCREASED
     Route: 048
     Dates: start: 19980101
  5. IBUPROFEN [Concomitant]
     Indication: ARTHRALGIA
     Dosage: 2 TABS
     Route: 048
     Dates: start: 20081201
  6. LANSOPRAZOLE [Concomitant]
     Indication: DYSPEPSIA
     Route: 048
     Dates: start: 20081222
  7. NULYTELY [Concomitant]
     Indication: CONSTIPATION
     Dosage: 1 SACHET
     Route: 048
     Dates: start: 20081224
  8. SENNOSIDE [Concomitant]
     Indication: CONSTIPATION
  9. SALBUTAMOL [Concomitant]
     Indication: WHEEZING
     Dosage: ORAL INHALER
     Route: 055
     Dates: start: 20090108
  10. BECLOMETHASONE DIPROPIONATE [Concomitant]
     Indication: DRUG USE FOR UNKNOWN INDICATION
     Route: 048
     Dates: start: 20090122
  11. ZOPICLONE [Concomitant]
     Indication: INSOMNIA
     Route: 048
     Dates: start: 20090219

REACTIONS (1)
  - DEEP VEIN THROMBOSIS [None]
